FAERS Safety Report 21263032 (Version 1)
Quarter: 2022Q3

REPORT INFORMATION
  Report Type: Spontaneous
  Country: US (occurrence: None)
  Receive Date: 20220826
  Receipt Date: 20220826
  Transmission Date: 20221027
  Serious: Yes (Other)
  Sender: FDA-Public Use
  Company Number: None

PATIENT
  Age: 13 Year
  Sex: Male
  Weight: 82.9 kg

DRUGS (1)
  1. ANAVIP [Suspect]
     Active Substance: PIT VIPER (CROTALINAE) IMMUNE GLOBULIN ANTIVENIN (EQUINE)
     Indication: Venom poisoning
     Dates: start: 20220825, end: 20220825

REACTIONS (4)
  - Rash [None]
  - Urticaria [None]
  - Infusion related reaction [None]
  - Incorrect dose administered [None]

NARRATIVE: CASE EVENT DATE: 20220825
